FAERS Safety Report 23330755 (Version 1)
Quarter: 2023Q4

REPORT INFORMATION
  Report Type: Spontaneous
  Country: JP (occurrence: JP)
  Receive Date: 20231222
  Receipt Date: 20231222
  Transmission Date: 20240110
  Serious: Yes (Death)
  Sender: FDA-Public Use
  Company Number: JP-002147023-NVSJ2023JP018011

PATIENT
  Age: 67 Year
  Sex: Male

DRUGS (6)
  1. KYMRIAH [Suspect]
     Active Substance: TISAGENLECLEUCEL
     Indication: Follicular lymphoma recurrent
     Dosage: UNK
     Route: 041
  2. CYCLOPHOSPHAMIDE [Concomitant]
     Active Substance: CYCLOPHOSPHAMIDE
     Indication: Follicular lymphoma recurrent
     Dosage: UNK
     Route: 065
  3. ETOPOSIDE [Concomitant]
     Active Substance: ETOPOSIDE
     Indication: Follicular lymphoma recurrent
     Dosage: UNK
     Route: 065
  4. CYTARABINE [Concomitant]
     Active Substance: CYTARABINE
     Indication: Follicular lymphoma recurrent
     Dosage: UNK
     Route: 065
  5. DEXAMETHASONE [Concomitant]
     Active Substance: DEXAMETHASONE
     Indication: Follicular lymphoma recurrent
     Dosage: UNK
     Route: 065
  6. RITUXIMAB [Concomitant]
     Active Substance: RITUXIMAB
     Indication: Follicular lymphoma recurrent
     Dosage: UNK
     Route: 065

REACTIONS (1)
  - Death [Fatal]
